FAERS Safety Report 19795394 (Version 1)
Quarter: 2021Q3

REPORT INFORMATION
  Report Type: Spontaneous
  Country: US (occurrence: US)
  Receive Date: 20210903
  Receipt Date: 20210903
  Transmission Date: 20211014
  Serious: No
  Sender: FDA-Public Use
  Company Number: None

PATIENT
  Age: 78 Year
  Sex: Female
  Weight: 77.85 kg

DRUGS (10)
  1. LISINOPRIL 10MG [Concomitant]
     Active Substance: LISINOPRIL
  2. LORAZEPAM 1MG [Concomitant]
     Active Substance: LORAZEPAM
  3. MDR FITNESS TAB FOR WOMEN [Concomitant]
  4. VERZENIO [Suspect]
     Active Substance: ABEMACICLIB
     Indication: BREAST CANCER
     Route: 048
     Dates: start: 20210721
  5. DIPHENHYDRAMINE 25MG [Concomitant]
     Active Substance: DIPHENHYDRAMINE
  6. METOPROLOL SUCCINATE ER 50MG [Concomitant]
  7. TYLENOL PM 500?25MG [Concomitant]
  8. PRAVASTATIN. [Concomitant]
     Active Substance: PRAVASTATIN
  9. OMEPRAZOLE 20MG [Concomitant]
     Active Substance: OMEPRAZOLE
  10. LETROZOLE 2.5MG [Concomitant]
     Active Substance: LETROZOLE

REACTIONS (4)
  - Diarrhoea [None]
  - Abdominal pain upper [None]
  - Stomatitis [None]
  - Nausea [None]

NARRATIVE: CASE EVENT DATE: 20210903
